FAERS Safety Report 6046609-3 (Version None)
Quarter: 2009Q1

REPORT INFORMATION
  Report Type: 
  Country: None (occurrence: None)
  Receive Date: 20090122
  Receipt Date: 20090115
  Transmission Date: 20090719
  Serious: Yes (Hospitalization)
  Sender: FDA-Public Use
  Company Number: PHHO2009DE00982

PATIENT
  Sex: Male
  Weight: 80 kg

DRUGS (4)
  1. MYFORTIC [Suspect]
     Indication: RENAL TRANSPLANT
     Dosage: 720 MG, BID
     Route: 048
     Dates: start: 20081020, end: 20090112
  2. SANDIMMUNE [Suspect]
     Indication: RENAL TRANSPLANT
     Dosage: 100 MG, BID
     Route: 048
     Dates: start: 20081020, end: 20090112
  3. NO TREATMENT RECEIVED NOMED [Suspect]
     Indication: RENAL TRANSPLANT
     Dosage: UNK
  4. DECORTIN-H [Suspect]
     Indication: RENAL TRANSPLANT
     Dosage: 12.5 MG / DAY
     Route: 048
     Dates: start: 20081020, end: 20090112

REACTIONS (4)
  - OCULAR VASCULITIS [None]
  - RENAL LYMPHOCELE [None]
  - UVEITIS [None]
  - VISUAL ACUITY REDUCED [None]
